FAERS Safety Report 4534865-X (Version None)
Quarter: 2004Q4

REPORT INFORMATION
  Report Type: 
  Country: None (occurrence: None)
  Receive Date: 20041222
  Receipt Date: 20040519
  Transmission Date: 20050328
  Serious: No
  Sender: FDA-Public Use
  Company Number: US-BRISTOL-MYERS SQUIBB COMPANY-12591699

PATIENT
  Sex: Female
  Weight: 57 kg

DRUGS (2)
  1. PRAVACHOL [Suspect]
     Indication: BLOOD CHOLESTEROL INCREASED
     Dosage: THERAPY INITIATED 1 1/2 YEARS AGO  ^ONE TABLET DAILY^
     Route: 048
     Dates: end: 20040521
  2. ZETIA [Concomitant]
     Indication: BLOOD CHOLESTEROL INCREASED

REACTIONS (4)
  - DRUG INEFFECTIVE [None]
  - FOOT FRACTURE [None]
  - MALAISE [None]
  - MYALGIA [None]
